FAERS Safety Report 12643347 (Version 1)
Quarter: 2016Q3

REPORT INFORMATION
  Report Type: Spontaneous
  Country: US (occurrence: US)
  Receive Date: 20160811
  Receipt Date: 20160811
  Transmission Date: 20161109
  Serious: No
  Sender: FDA-Public Use
  Company Number: US-009507513-1608USA006121

PATIENT
  Sex: Female
  Weight: 48.98 kg

DRUGS (1)
  1. NEXPLANON [Suspect]
     Active Substance: ETONOGESTREL
     Indication: CONTRACEPTION
     Dosage: 1 IMPLANT EVERY 3 YEARS
     Route: 059
     Dates: start: 20130121

REACTIONS (7)
  - Implant site pain [Unknown]
  - Dyspnoea [Unknown]
  - Chest discomfort [Unknown]
  - Weight decreased [Unknown]
  - Abdominal pain [Unknown]
  - Implant site bruising [Unknown]
  - Intentional product use issue [Unknown]
